FAERS Safety Report 9209684 (Version 1)
Quarter: 2013Q2

REPORT INFORMATION
  Report Type: Spontaneous
  Country: US (occurrence: None)
  Receive Date: 20130403
  Receipt Date: 20130403
  Transmission Date: 20140414
  Serious: Yes (Life-Threatening)
  Sender: FDA-Public Use
  Company Number: None

PATIENT
  Age: 61 Year
  Sex: Male
  Weight: 79.38 kg

DRUGS (2)
  1. HYDROCODONE/ACETAMINOPHEN [Suspect]
     Dosage: 5/325 1-4 DAILY ORAL 047
     Dates: start: 201302, end: 201303
  2. HYDROCODONE/ACETAMINOPHEN [Suspect]
     Indication: SCROTAL INFECTION
     Dosage: 5/325 1-4 DAILY ORAL 047
     Dates: start: 201302, end: 201303

REACTIONS (17)
  - Palpitations [None]
  - Dizziness [None]
  - Syncope [None]
  - Oesophageal stenosis [None]
  - Burning sensation [None]
  - Abdominal pain [None]
  - Hyperchlorhydria [None]
  - Dyspepsia [None]
  - Abdominal pain upper [None]
  - Early satiety [None]
  - Abdominal distension [None]
  - Eructation [None]
  - Flatulence [None]
  - Abdominal pain upper [None]
  - Nausea [None]
  - Hot flush [None]
  - Weight decreased [None]
